FAERS Safety Report 23355969 (Version 2)
Quarter: 2024Q1

REPORT INFORMATION
  Report Type: Spontaneous
  Country: US (occurrence: US)
  Receive Date: 20240102
  Receipt Date: 20240131
  Transmission Date: 20240410
  Serious: No
  Sender: FDA-Public Use
  Company Number: US-SA-SAC20231222000576

PATIENT
  Sex: Female
  Weight: 16 kg

DRUGS (2)
  1. DUPIXENT [Suspect]
     Active Substance: DUPILUMAB
     Indication: Dermatitis atopic
     Dosage: 200 MG, Q4W
     Route: 058
  2. DUPIXENT [Suspect]
     Active Substance: DUPILUMAB
     Dosage: 300 MG, Q4W
     Route: 058

REACTIONS (6)
  - Pruritus [Unknown]
  - Erythema [Unknown]
  - Dermatitis atopic [Unknown]
  - Rash [Unknown]
  - Therapeutic response shortened [Unknown]
  - Incorrect dose administered [Unknown]
